FAERS Safety Report 4276720-9 (Version None)
Quarter: 2004Q1

REPORT INFORMATION
  Report Type: 
  Country: None (occurrence: None)
  Receive Date: 20040121
  Receipt Date: 20040121
  Transmission Date: 20041129
  Serious: No
  Sender: FDA-Public Use
  Company Number: None

PATIENT
  Age: 65 Year
  Sex: Female
  Weight: 103.4201 kg

DRUGS (13)
  1. FLOLAN [Suspect]
     Indication: PULMONARY HYPERTENSION
     Dosage: 6NG/KG/MIN
     Dates: start: 20031112, end: 20040120
  2. NORTHYPTYLINE [Concomitant]
  3. NORTRYPTYLINE [Concomitant]
  4. WARFARIN SODIUM [Concomitant]
  5. COZAAZ [Concomitant]
  6. METOPROLOL [Concomitant]
  7. FUROSEMIDE [Concomitant]
  8. METHOCARBAMOL [Concomitant]
  9. K-TAB [Concomitant]
  10. ISOSORBIDE [Concomitant]
  11. BETAMETHASONE [Concomitant]
  12. HYDROXZINE [Concomitant]
  13. GLYBURIDE [Concomitant]

REACTIONS (2)
  - DERMATITIS EXFOLIATIVE [None]
  - RASH PRURITIC [None]
